FAERS Safety Report 5160107-0 (Version None)
Quarter: 2006Q4

REPORT INFORMATION
  Report Type: 
  Country: None (occurrence: None)
  Receive Date: 20061129
  Receipt Date: 20061108
  Transmission Date: 20070319
  Serious: Yes (Hospitalization)
  Sender: FDA-Public Use
  Company Number: US-RB-004399-06

PATIENT
  Age: 46 Year
  Sex: Male

DRUGS (1)
  1. SUBUTEX [Suspect]
     Indication: DRUG USE FOR UNKNOWN INDICATION
     Dosage: DOSAGE UNKNOWN
     Route: 051

REACTIONS (3)
  - INTENTIONAL DRUG MISUSE [None]
  - SENSORY LOSS [None]
  - SKIN DYSTROPHY [None]
